FAERS Safety Report 13846411 (Version 2)
Quarter: 2017Q3

REPORT INFORMATION
  Report Type: Spontaneous
  Country: US (occurrence: US)
  Receive Date: 20170808
  Receipt Date: 20170817
  Transmission Date: 20171127
  Serious: Yes (Other)
  Sender: FDA-Public Use
  Company Number: US-TEVA-794863ACC

PATIENT
  Sex: Female
  Weight: 62.65 kg

DRUGS (1)
  1. TAKE ACTION [Suspect]
     Active Substance: LEVONORGESTREL
     Indication: POST COITAL CONTRACEPTION
     Dates: start: 20170709, end: 20170709

REACTIONS (3)
  - Drug ineffective [Unknown]
  - Pregnancy after post coital contraception [Unknown]
  - Maternal exposure during pregnancy [Unknown]
